FAERS Safety Report 4396037-1 (Version None)
Quarter: 2004Q2

REPORT INFORMATION
  Report Type: 
  Country: None (occurrence: None)
  Receive Date: 20040621
  Receipt Date: 20031117
  Transmission Date: 20050107
  Serious: Yes (Death)
  Sender: FDA-Public Use
  Company Number: USA-2003-0010836

PATIENT
  Age: 61 Year
  Sex: Female
  Weight: 48.1 kg

DRUGS (9)
  1. OXYCODONE HCL [Suspect]
     Indication: PAIN
  2. MS CONTIN [Suspect]
     Indication: PAIN
  3. HYDROCODONE BITARTRATE [Suspect]
  4. TEMAZEPAM [Suspect]
  5. ACETAMINOPHEN [Suspect]
  6. DIPHENHYDRAMINE HCL [Suspect]
  7. DIAZEPAM [Suspect]
  8. LIDOCAINE [Suspect]
  9. CODEINE (CODEINE) [Suspect]

REACTIONS (2)
  - INTENTIONAL OVERDOSE [None]
  - MULTIPLE DRUG OVERDOSE [None]
